FAERS Safety Report 6649554-5 (Version None)
Quarter: 2010Q1

REPORT INFORMATION
  Report Type: 
  Country: None (occurrence: None)
  Receive Date: 20100324
  Receipt Date: 20100324
  Transmission Date: 20100710
  Serious: Yes (Other)
  Sender: FDA-Public Use
  Company Number: None

PATIENT
  Age: 83 Year
  Sex: Male
  Weight: 82.1011 kg

DRUGS (1)
  1. LEVAQUIN [Suspect]
     Dosage: ONE PILL DAILY PO
     Route: 048
     Dates: start: 20100213, end: 20100223

REACTIONS (1)
  - RASH GENERALISED [None]
